FAERS Safety Report 14966974 (Version 6)
Quarter: 2018Q4

REPORT INFORMATION
  Report Type: Report from Study
  Country: GB (occurrence: GB)
  Receive Date: 20180604
  Receipt Date: 20181101
  Transmission Date: 20190204
  Serious: Yes (Death, Congenital Anomaly, Other)
  Sender: FDA-Public Use
  Company Number: GB-BRISTOL-MYERS SQUIBB COMPANY-BMS-2018-048137

PATIENT
  Sex: Female

DRUGS (4)
  1. TRUVADA [Suspect]
     Active Substance: EMTRICITABINE\TENOFOVIR DISOPROXIL FUMARATE
     Indication: PRODUCT USED FOR UNKNOWN INDICATION
     Dosage: 1 DF, QD
     Route: 064
     Dates: start: 20150611, end: 20180630
  2. NORVIR [Suspect]
     Active Substance: RITONAVIR
     Indication: PRODUCT USED FOR UNKNOWN INDICATION
     Dosage: 100 MG, QD
     Route: 064
     Dates: start: 20150611, end: 20180630
  3. DALTEPARIN [Suspect]
     Active Substance: DALTEPARIN
     Indication: PRODUCT USED FOR UNKNOWN INDICATION
     Dosage: UNK
     Route: 064
  4. ATAZANAVIR SULFATE. [Suspect]
     Active Substance: ATAZANAVIR SULFATE
     Indication: PRODUCT USED FOR UNKNOWN INDICATION
     Dosage: 300 MG, QD
     Route: 064
     Dates: start: 20150611, end: 20180630

REACTIONS (7)
  - Foetal exposure during pregnancy [Unknown]
  - Low birth weight baby [Unknown]
  - Trisomy 18 [Fatal]
  - Oesophageal atresia [Fatal]
  - Tracheo-oesophageal fistula [Fatal]
  - Ventricular septal defect [Fatal]
  - Nervous system disorder [Unknown]

NARRATIVE: CASE EVENT DATE: 20180305
